FAERS Safety Report 15964139 (Version 1)
Quarter: 2019Q1

REPORT INFORMATION
  Report Type: Spontaneous
  Country: US (occurrence: US)
  Receive Date: 20190214
  Receipt Date: 20190214
  Transmission Date: 20190417
  Serious: No
  Sender: FDA-Public Use
  Company Number: US-GLAXOSMITHKLINE-US2019022754

PATIENT
  Age: 64 Year
  Sex: Male

DRUGS (1)
  1. FLONASE SENSIMIST ALLERGY RELIEF [Suspect]
     Active Substance: FLUTICASONE FUROATE
     Indication: HYPERSENSITIVITY
     Dosage: 1 SPRAY IN EACH NOSTRIL

REACTIONS (4)
  - Ear discomfort [Unknown]
  - Product use issue [Unknown]
  - Middle ear effusion [Unknown]
  - Underdose [Unknown]
